FAERS Safety Report 12267678 (Version 2)
Quarter: 2016Q3

REPORT INFORMATION
  Report Type: Spontaneous
  Country: US (occurrence: US)
  Receive Date: 20160414
  Receipt Date: 20160714
  Transmission Date: 20161109
  Serious: No
  Sender: FDA-Public Use
  Company Number: US-GALDERMA-US16001048

PATIENT
  Age: 71 Year
  Sex: Male

DRUGS (4)
  1. UNSPECIFIED BABY SHAMPOO [Concomitant]
     Route: 061
  2. VYTORIN (EZETIMIBE AND SIMVASTATIN) [Concomitant]
     Indication: BLOOD CHOLESTEROL
     Route: 048
  3. ANDROGEL (TESTOSTERONE GEL) [Concomitant]
     Indication: BLOOD TESTOSTERONE DECREASED
     Route: 061
  4. SOOLANTRA [Suspect]
     Active Substance: IVERMECTIN
     Indication: ROSACEA
     Dosage: 1%
     Route: 061
     Dates: start: 201601, end: 20160215

REACTIONS (3)
  - Incorrect drug administration rate [Not Recovered/Not Resolved]
  - Eye pruritus [Recovered/Resolved]
  - Eye irritation [Recovered/Resolved]

NARRATIVE: CASE EVENT DATE: 201601
